FAERS Safety Report 18299350 (Version 2)
Quarter: 2020Q4

REPORT INFORMATION
  Report Type: Report from Study
  Country: MX (occurrence: MX)
  Receive Date: 20200922
  Receipt Date: 20201007
  Transmission Date: 20210113
  Serious: Yes (Other)
  Sender: FDA-Public Use
  Company Number: MX-SEATTLE GENETICS-2020SGN04191

PATIENT
  Age: 37 Year
  Sex: Female
  Weight: 68 kg

DRUGS (1)
  1. BRENTUXIMAB VEDOTIN [Suspect]
     Active Substance: BRENTUXIMAB VEDOTIN
     Indication: HODGKIN^S DISEASE
     Dosage: 123 MILLIGRAM
     Route: 042
     Dates: start: 20200124, end: 20200915

REACTIONS (2)
  - Drug ineffective [Unknown]
  - Hodgkin^s disease [Unknown]

NARRATIVE: CASE EVENT DATE: 20200909
